FAERS Safety Report 9264828 (Version 1)
Quarter: 2013Q2

REPORT INFORMATION
  Report Type: Spontaneous
  Country: IT (occurrence: None)
  Receive Date: 20130429
  Receipt Date: 20130429
  Transmission Date: 20140414
  Serious: Yes (Hospitalization)
  Sender: FDA-Public Use
  Company Number: FK201301252

PATIENT
  Age: 62 Year
  Sex: Female

DRUGS (2)
  1. CEFTRIAXON [Suspect]
     Indication: BRONCHITIS
     Route: 030
     Dates: start: 20130123, end: 20130123
  2. NANSEN (OMEPRAZOLE) [Concomitant]

REACTIONS (4)
  - Hypersensitivity [None]
  - Dyspnoea [None]
  - Rash [None]
  - Pruritus [None]
